FAERS Safety Report 7178827-5 (Version None)
Quarter: 2010Q4

REPORT INFORMATION
  Report Type: 
  Country: None (occurrence: None)
  Receive Date: 20101209
  Receipt Date: 20101123
  Transmission Date: 20110411
  Serious: Yes (Life-Threatening, Hospitalization)
  Sender: FDA-Public Use
  Company Number: AE-2008-062

PATIENT
  Age: 54 Year
  Sex: Male
  Weight: 78 kg

DRUGS (12)
  1. HYDROCHLOROTHIAZIDE [Suspect]
     Indication: HYPERTENSION
     Dosage: 25 MG TABLET QD ORALLY
     Route: 048
     Dates: start: 20080301, end: 20080821
  2. FUROSEMIDE [Suspect]
     Indication: RENAL IMPAIRMENT
     Dosage: 40 MG, TABLET QD, ORAL
     Route: 048
     Dates: start: 20080301, end: 20080821
  3. RAMIPRIL [Suspect]
     Indication: HYPERTENSION
     Dosage: 5 MG QD, ORAL
     Route: 048
     Dates: start: 19900101
  4. BISOPROLOL FILM COATED TABLET [Suspect]
     Indication: CORONARY ARTERY DISEASE
     Dosage: 5MG, BID, ORAL
     Route: 048
     Dates: start: 19900101
  5. FALITHROM ^HEXAL^ [Concomitant]
  6. PREGABALIN (CAPSULES) [Concomitant]
  7. FENOTEROL HYDROBROMIDE [Concomitant]
  8. GABAPENTIN, FILM COATED-TABLET (TABLETS) [Concomitant]
  9. PANTOPRAZOLE SODIUM(TABLETS) [Concomitant]
  10. PRAMIPEXOLE DIHYDROCHLORIDE(TABLETS) [Concomitant]
  11. SIMVASTATIN [Concomitant]
  12. SPIRIVA ^BOEHRINGER INGELHEIM^ (CAPSULES) [Concomitant]

REACTIONS (3)
  - ARRHYTHMIA [None]
  - DEHYDRATION [None]
  - INTERNATIONAL NORMALISED RATIO INCREASED [None]
